FAERS Safety Report 6916361-5 (Version None)
Quarter: 2010Q3

REPORT INFORMATION
  Report Type: 
  Country: None (occurrence: None)
  Receive Date: 20100805
  Receipt Date: 20100721
  Transmission Date: 20110219
  Serious: Yes (Other)
  Sender: FDA-Public Use
  Company Number: 2010MB000038

PATIENT
  Age: 18 Year
  Sex: Male

DRUGS (2)
  1. CEPHALEXIN [Suspect]
     Indication: PRODUCT USED FOR UNKNOWN INDICATION
  2. MINOCYCLINE HCL [Suspect]
     Indication: PRODUCT USED FOR UNKNOWN INDICATION
     Dosage: 100 MG;QD

REACTIONS (1)
  - AUTOIMMUNE HEPATITIS [None]
